FAERS Safety Report 6317296-1 (Version None)
Quarter: 2009Q3

REPORT INFORMATION
  Report Type: 
  Country: None (occurrence: None)
  Receive Date: 20090821
  Receipt Date: 20090814
  Transmission Date: 20100115
  Serious: Yes (Hospitalization)
  Sender: FDA-Public Use
  Company Number: US-BIOGENIDEC-2009BI018585

PATIENT
  Age: 50 Year
  Sex: Female

DRUGS (3)
  1. TYSABRI [Suspect]
     Indication: MULTIPLE SCLEROSIS
     Route: 042
     Dates: start: 20071205, end: 20080208
  2. TYSABRI [Suspect]
     Route: 042
     Dates: start: 20090209
  3. MOTRIN [Concomitant]
     Indication: DRUG USE FOR UNKNOWN INDICATION

REACTIONS (8)
  - FALL [None]
  - GASTRIC HAEMORRHAGE [None]
  - GASTRIC MUCOSAL LESION [None]
  - JOINT DISLOCATION [None]
  - MULTIPLE SCLEROSIS RELAPSE [None]
  - RED BLOOD CELL COUNT DECREASED [None]
  - UPPER LIMB FRACTURE [None]
  - URINARY TRACT INFECTION [None]
